FAERS Safety Report 24111583 (Version 1)
Quarter: 2024Q3

REPORT INFORMATION
  Report Type: Spontaneous
  Country: US (occurrence: US)
  Receive Date: 20240718
  Receipt Date: 20240718
  Transmission Date: 20241016
  Serious: Yes (Hospitalization, Disabling)
  Sender: MYLAN
  Company Number: US-MYLANLABS-2024M1066054

PATIENT
  Age: 74 Year
  Sex: Female

DRUGS (3)
  1. HEPARIN [Suspect]
     Active Substance: HEPARIN SODIUM
     Indication: Thrombosis prophylaxis
     Dosage: UNK; 5000?UNITS EVERY 8?HOURS
     Route: 058
  2. HEPARIN [Suspect]
     Active Substance: HEPARIN SODIUM
     Indication: Deep vein thrombosis
     Dosage: UNK; INTRAVENOUS INFUSION
     Route: 042
  3. ARGATROBAN [Concomitant]
     Active Substance: ARGATROBAN
     Indication: Deep vein thrombosis
     Dosage: UNK
     Route: 065

REACTIONS (2)
  - Heparin-induced thrombocytopenia [Recovering/Resolving]
  - Drug ineffective [Unknown]
